FAERS Safety Report 7418170-X (Version None)
Quarter: 2011Q2

REPORT INFORMATION
  Report Type: 
  Country: None (occurrence: None)
  Receive Date: 20110415
  Receipt Date: 20110404
  Transmission Date: 20111010
  Serious: Yes (Hospitalization)
  Sender: FDA-Public Use
  Company Number: US-JNJFOC-20110200293

PATIENT
  Sex: Female
  Weight: 68.04 kg

DRUGS (1)
  1. STELARA [Suspect]
     Indication: PSORIASIS
     Route: 058

REACTIONS (4)
  - GALLBLADDER OPERATION [None]
  - STRESS [None]
  - PANCREATITIS [None]
  - MUSCLE SPASMS [None]
